FAERS Safety Report 8961622 (Version 1)
Quarter: 2012Q4

REPORT INFORMATION
  Report Type: 
  Country: US (occurrence: US)
  Receive Date: 20121213
  Receipt Date: 20121213
  Transmission Date: 20130627
  Serious: No
  Sender: FDA-Public Use
  Company Number: US-ALLERGAN-1215063US

PATIENT
  Sex: Female

DRUGS (1)
  1. LUMIGAN� 0.01% [Suspect]
     Indication: INCREASED INTRAOCULAR PRESSURE
     Dosage: 2 Gtt, qhs
     Route: 047
     Dates: start: 20121023

REACTIONS (4)
  - Headache [Unknown]
  - Scleral hyperaemia [Recovered/Resolved]
  - Headache [Recovered/Resolved]
  - Ocular discomfort [Unknown]
